FAERS Safety Report 20739620 (Version 1)
Quarter: 2022Q2

REPORT INFORMATION
  Report Type: Spontaneous
  Country: US (occurrence: None)
  Receive Date: 20220421
  Receipt Date: 20220421
  Transmission Date: 20220721
  Serious: Yes (Disabling)
  Sender: FDA-Public Use
  Company Number: None

PATIENT
  Age: 57 Year
  Sex: Female

DRUGS (4)
  1. PHENTERMINE [Suspect]
     Active Substance: PHENTERMINE
     Indication: Weight control
     Dates: start: 20170505, end: 20200201
  2. Fioricette [Concomitant]
  3. ASPIRIN [Concomitant]
     Active Substance: ASPIRIN
  4. MOTRIN [Concomitant]
     Active Substance: IBUPROFEN

REACTIONS (3)
  - Disability [None]
  - Anxiety [None]
  - Brain injury [None]

NARRATIVE: CASE EVENT DATE: 20200201
